FAERS Safety Report 25284562 (Version 1)
Quarter: 2025Q2

REPORT INFORMATION
  Report Type: Spontaneous
  Country: FR (occurrence: FR)
  Receive Date: 20250508
  Receipt Date: 20250508
  Transmission Date: 20250716
  Serious: Yes (Hospitalization)
  Sender: MYLAN
  Company Number: FR-ROCHE-10000264267

PATIENT
  Age: 33 Year
  Sex: Male

DRUGS (8)
  1. TACROLIMUS [Suspect]
     Active Substance: TACROLIMUS
     Indication: Prophylaxis against transplant rejection
  2. CELLCEPT [Suspect]
     Active Substance: MYCOPHENOLATE MOFETIL
     Indication: Prophylaxis against transplant rejection
  3. COTRIMOXAZOLE [Concomitant]
     Active Substance: SULFAMETHOXAZOLE\TRIMETHOPRIM
  4. CEFUROXIME [Concomitant]
     Active Substance: CEFUROXIME
  5. AMOXICILLIN\CLAVULANIC ACID [Concomitant]
     Active Substance: AMOXICILLIN\CLAVULANIC ACID
  6. MEROPENEM [Concomitant]
     Active Substance: MEROPENEM
  7. AMIKACIN [Concomitant]
     Active Substance: AMIKACIN
  8. TEMOCILLIN [Concomitant]
     Active Substance: TEMOCILLIN

REACTIONS (3)
  - Osteitis [Recovered/Resolved]
  - Lung abscess [Recovered/Resolved]
  - Mediastinitis [Recovered/Resolved]
